FAERS Safety Report 8113449-0 (Version None)
Quarter: 2012Q1

REPORT INFORMATION
  Report Type: 
  Country: None (occurrence: None)
  Receive Date: 20120203
  Receipt Date: 20120127
  Transmission Date: 20120608
  Serious: Yes (Hospitalization)
  Sender: FDA-Public Use
  Company Number: HR-GENZYME-CAMP-1002102

PATIENT
  Sex: Female
  Weight: 57 kg

DRUGS (2)
  1. ALEMTUZUMAB [Suspect]
     Dosage: UNK
     Route: 042
     Dates: start: 20090112, end: 20090114
  2. ALEMTUZUMAB [Suspect]
     Indication: MULTIPLE SCLEROSIS
     Dosage: UNK
     Route: 042
     Dates: start: 20100112, end: 20100114

REACTIONS (1)
  - HYPERTHYROIDISM [None]
